FAERS Safety Report 14665388 (Version 5)
Quarter: 2019Q1

REPORT INFORMATION
  Report Type: Spontaneous
  Country: US (occurrence: US)
  Receive Date: 20180321
  Receipt Date: 20190212
  Transmission Date: 20190417
  Serious: No
  Sender: FDA-Public Use
  Company Number: US-PFIZER INC-2016314097

PATIENT
  Age: 62 Year
  Sex: Male
  Weight: 82 kg

DRUGS (7)
  1. ELIQUIS [Concomitant]
     Active Substance: APIXABAN
     Indication: ANTICOAGULANT THERAPY
     Dosage: 5 MG, TWICE A DAY
  2. RAPAMUNE [Suspect]
     Active Substance: SIROLIMUS
     Dosage: 3 DF (3 TABLETS BY MOUTH ONCE DAY)
     Route: 048
  3. RAPAMUNE [Suspect]
     Active Substance: SIROLIMUS
     Dosage: 1 MG, UNK
  4. CELLCEPT [Concomitant]
     Active Substance: MYCOPHENOLATE MOFETIL\MYCOPHENOLATE MOFETIL HYDROCHLORIDE
     Indication: PROPHYLAXIS AGAINST TRANSPLANT REJECTION
     Dosage: UNK
  5. RAPAMUNE [Suspect]
     Active Substance: SIROLIMUS
     Dosage: 2 TABLETS, DAILY
     Route: 048
  6. RAPAMUNE [Suspect]
     Active Substance: SIROLIMUS
     Dosage: 4 TABLETS, ONCE PER DAY
     Route: 048
     Dates: start: 20130222, end: 201611
  7. RAPAMUNE [Suspect]
     Active Substance: SIROLIMUS
     Indication: PROPHYLAXIS AGAINST TRANSPLANT REJECTION
     Dosage: UNK
     Dates: start: 2012

REACTIONS (2)
  - Blood potassium decreased [Not Recovered/Not Resolved]
  - Product use in unapproved indication [Unknown]
